FAERS Safety Report 4764644-X (Version None)
Quarter: 2005Q3

REPORT INFORMATION
  Report Type: 
  Country: None (occurrence: None)
  Receive Date: 20050909
  Receipt Date: 20050707
  Transmission Date: 20060218
  Serious: Yes (Other)
  Sender: FDA-Public Use
  Company Number: 2005JP001172

PATIENT
  Age: 58 Year
  Sex: Male

DRUGS (1)
  1. CEFAZOLIN [Suspect]
     Indication: DRUG USE FOR UNKNOWN INDICATION
     Dosage: 100MG TWICE PER DAY
     Route: 042
     Dates: start: 20050329

REACTIONS (4)
  - CHEST X-RAY ABNORMAL [None]
  - CONDITION AGGRAVATED [None]
  - CRYPTOGENIC ORGANIZING PNEUMONIA [None]
  - PNEUMONIA [None]
